FAERS Safety Report 7574116 (Version 6)
Quarter: 2013Q4

REPORT INFORMATION
  Report Type: Spontaneous
  Country: US (occurrence: US)
  Receive Date: 20100907
  Receipt Date: 20131226
  Transmission Date: 20140711
  Serious: Yes (Hospitalization, Other)
  Sender: FDA-Public Use
  Company Number: US-BAYER-201032626NA

PATIENT
  Age: 30 Year
  Sex: Female
  Weight: 58.96 kg

DRUGS (6)
  1. YAZ [Suspect]
     Indication: CONTRACEPTION
     Dosage: UNK UNK, QD
     Route: 048
     Dates: start: 200602, end: 200805
  2. YASMIN [Suspect]
     Indication: CONTRACEPTION
     Dosage: UNK UNK, QD
     Route: 048
     Dates: start: 200602, end: 200805
  3. YASMIN [Suspect]
     Indication: CONTRACEPTION
     Dosage: UNK
     Route: 048
  4. NSAID^S [Concomitant]
     Dosage: NOS
  5. ANTI-ASTHMATICS [Concomitant]
     Indication: ASTHMA
  6. VITAMIN C [Concomitant]

REACTIONS (9)
  - Gallbladder disorder [None]
  - Cholecystitis chronic [None]
  - Cholelithiasis [None]
  - Renal disorder [None]
  - Abdominal pain upper [None]
  - Abdominal pain [None]
  - Back pain [None]
  - Urinary tract infection [None]
  - Discomfort [None]
